FAERS Safety Report 18518682 (Version 1)
Quarter: 2020Q4

REPORT INFORMATION
  Report Type: Spontaneous
  Country: US (occurrence: US)
  Receive Date: 20201118
  Receipt Date: 20201118
  Transmission Date: 20210114
  Serious: No
  Sender: FDA-Public Use
  Company Number: US-ASTRAZENECA-2020SF46947

PATIENT
  Age: 30047 Day
  Sex: Female

DRUGS (2)
  1. PEPCID [Concomitant]
     Active Substance: FAMOTIDINE
  2. NEXIUM [Suspect]
     Active Substance: ESOMEPRAZOLE MAGNESIUM
     Indication: GASTROOESOPHAGEAL REFLUX DISEASE
     Route: 048
     Dates: start: 20201023

REACTIONS (3)
  - Feeling abnormal [Unknown]
  - Diarrhoea [Unknown]
  - Nervousness [Unknown]

NARRATIVE: CASE EVENT DATE: 20201030
